FAERS Safety Report 9050471 (Version 1)
Quarter: 2013Q1

REPORT INFORMATION
  Report Type: Spontaneous
  Country: US (occurrence: US)
  Receive Date: 20130205
  Receipt Date: 20130205
  Transmission Date: 20140127
  Serious: No
  Sender: FDA-Public Use
  Company Number: US-PFIZER INC-2013042485

PATIENT
  Age: 52 Year
  Sex: Female
  Weight: 58 kg

DRUGS (3)
  1. PREMARIN [Suspect]
     Indication: VULVOVAGINAL DRYNESS
     Dosage: UNK
     Route: 048
  2. PREMARIN VAGINAL CREAM [Concomitant]
     Indication: VULVOVAGINAL DRYNESS
     Dosage: UNKNOWN DOSE (BETWEEN 0.5 -0.75 G), 2X/WEEK
     Route: 067
  3. VIVELLE-DOT [Concomitant]
     Indication: HORMONE REPLACEMENT THERAPY
     Dosage: 0.025 MG, WEEKLY
     Route: 062

REACTIONS (1)
  - Migraine [Unknown]
